FAERS Safety Report 7218672-5 (Version None)
Quarter: 2011Q1

REPORT INFORMATION
  Report Type: 
  Country: None (occurrence: None)
  Receive Date: 20110110
  Receipt Date: 20110106
  Transmission Date: 20110831
  Serious: Yes (Other)
  Sender: FDA-Public Use
  Company Number: FR-ABBOTT-10P-056-0690618-00

PATIENT
  Sex: Male
  Weight: 86 kg

DRUGS (2)
  1. PURINETHOL [Concomitant]
     Indication: PRODUCT USED FOR UNKNOWN INDICATION
  2. HUMIRA [Suspect]
     Indication: PRODUCT USED FOR UNKNOWN INDICATION
     Dosage: 1 INJECTION OF 80MG
     Route: 048
     Dates: start: 20101203

REACTIONS (7)
  - GINGIVAL PAIN [None]
  - FATIGUE [None]
  - ASTHENIA [None]
  - INFLUENZA [None]
  - TOOTHACHE [None]
  - GINGIVAL BLEEDING [None]
  - GINGIVITIS [None]
